FAERS Safety Report 23470188 (Version 2)
Quarter: 2024Q1

REPORT INFORMATION
  Report Type: Spontaneous
  Country: US (occurrence: US)
  Receive Date: 20240202
  Receipt Date: 20240228
  Transmission Date: 20240410
  Serious: Yes (Other)
  Sender: FDA-Public Use
  Company Number: US-LEO Pharma-367088

PATIENT
  Age: 63 Year
  Sex: Male

DRUGS (1)
  1. ADBRY [Suspect]
     Active Substance: TRALOKINUMAB-LDRM
     Indication: Dermatitis atopic
     Dosage: 2ML
     Route: 058
     Dates: start: 20231023

REACTIONS (1)
  - Thrombocytopenia [Not Recovered/Not Resolved]
